FAERS Safety Report 13078627 (Version 1)
Quarter: 2017Q1

REPORT INFORMATION
  Report Type: Spontaneous
  Country: US (occurrence: US)
  Receive Date: 20170102
  Receipt Date: 20170102
  Transmission Date: 20170428
  Serious: No
  Sender: FDA-Public Use
  Company Number: US-009507513-1612USA005436

PATIENT
  Age: 9 Year
  Sex: Male

DRUGS (1)
  1. DEXAMETHASONE. [Suspect]
     Active Substance: DEXAMETHASONE
     Dosage: (HIGH DOSE) 0.75MG/ KG BOLUS FOLLOWED BY 1 MG/KG/D IN 4 DIVIDED DOSES

REACTIONS (1)
  - Drug ineffective [Unknown]
